FAERS Safety Report 8202709-0 (Version None)
Quarter: 2012Q1

REPORT INFORMATION
  Report Type: 
  Country: None (occurrence: None)
  Receive Date: 20120312
  Receipt Date: 20120308
  Transmission Date: 20120608
  Serious: Yes (Hospitalization)
  Sender: FDA-Public Use
  Company Number: GB-ABBOTT-12P-167-0913239-00

PATIENT
  Sex: Male

DRUGS (1)
  1. HUMIRA [Suspect]
     Indication: PSORIATIC ARTHROPATHY
     Dosage: 1EVERY 2 WEEKS - EVERY 2/52
     Route: 058
     Dates: start: 20120306

REACTIONS (6)
  - PARAESTHESIA [None]
  - HYPOAESTHESIA [None]
  - BACK PAIN [None]
  - HEADACHE [None]
  - SOMNOLENCE [None]
  - LOSS OF CONTROL OF LEGS [None]
